FAERS Safety Report 10479589 (Version 1)
Quarter: 2014Q3

REPORT INFORMATION
  Report Type: Spontaneous
  Country: ES (occurrence: ES)
  Receive Date: 20140927
  Receipt Date: 20140927
  Transmission Date: 20150326
  Serious: Yes (Other)
  Sender: FDA-Public Use
  Company Number: ES-PERRIGO-14ES009279

PATIENT
  Age: 39 Year
  Sex: Female

DRUGS (2)
  1. NAPROXEN SODIUM 220 MG 368 [Suspect]
     Active Substance: NAPROXEN SODIUM
     Indication: PRODUCT USED FOR UNKNOWN INDICATION
     Dosage: UNK, UNK
     Route: 048
  2. NAPROXEN SODIUM 220 MG 368 [Suspect]
     Active Substance: NAPROXEN SODIUM
     Indication: ALLERGY TEST
     Dosage: 550 MG, UNK
     Route: 048

REACTIONS (3)
  - Angioedema [Recovered/Resolved]
  - Pruritus generalised [Recovered/Resolved]
  - Pruritus genital [Recovered/Resolved]
